FAERS Safety Report 19088594 (Version 2)
Quarter: 2021Q2

REPORT INFORMATION
  Report Type: Report from Study
  Country: MX (occurrence: MX)
  Receive Date: 20210402
  Receipt Date: 20210414
  Transmission Date: 20210717
  Serious: Yes (Other)
  Sender: FDA-Public Use
  Company Number: MX-TAKEDA-MX202024068

PATIENT
  Age: 5 Year
  Sex: Female
  Weight: 15.3 kg

DRUGS (3)
  1. IBUPROFEN. [Concomitant]
     Active Substance: IBUPROFEN
     Indication: PAIN
     Route: 048
  2. VELAGLUCERASE ALFA [Suspect]
     Active Substance: VELAGLUCERASE ALFA
     Indication: GAUCHER^S DISEASE
     Dosage: 400 INTERNATIONAL UNIT, Q2WEEKS
     Route: 042
  3. VELAGLUCERASE ALFA [Suspect]
     Active Substance: VELAGLUCERASE ALFA
     Dosage: 3 DOSAGE FORM, Q2WEEKS
     Route: 042

REACTIONS (6)
  - Abdominal abscess [Recovering/Resolving]
  - Fall [Recovering/Resolving]
  - Product dose omission issue [Recovered/Resolved]
  - Diarrhoea [Recovering/Resolving]
  - Humerus fracture [Recovered/Resolved]
  - Pain in extremity [Recovering/Resolving]

NARRATIVE: CASE EVENT DATE: 20200722
